FAERS Safety Report 16918688 (Version 2)
Quarter: 2020Q1

REPORT INFORMATION
  Report Type: Spontaneous
  Country: US (occurrence: US)
  Receive Date: 20191015
  Receipt Date: 20200205
  Transmission Date: 20200409
  Serious: Yes (Other)
  Sender: FDA-Public Use
  Company Number: US-009507513-1910USA010009

PATIENT
  Sex: Female

DRUGS (2)
  1. TICE BCG [Suspect]
     Active Substance: BACILLUS CALMETTE-GUERIN SUBSTRAIN TICE LIVE ANTIGEN
     Dosage: ONLY RECEIVED 30% OF THE DOSAGE EACH TIME
     Dates: start: 2019, end: 2019
  2. TICE BCG [Suspect]
     Active Substance: BACILLUS CALMETTE-GUERIN SUBSTRAIN TICE LIVE ANTIGEN
     Indication: BLADDER CANCER
     Dosage: UNK
     Dates: start: 201904, end: 2019

REACTIONS (4)
  - Ureteral neoplasm [Unknown]
  - Incorrect dose administered [Unknown]
  - Bladder cancer recurrent [Unknown]
  - Product availability issue [Unknown]

NARRATIVE: CASE EVENT DATE: 2019
